FAERS Safety Report 10144468 (Version 22)
Quarter: 2015Q1

REPORT INFORMATION
  Report Type: Spontaneous
  Country: CL (occurrence: CL)
  Receive Date: 20140430
  Receipt Date: 20150114
  Transmission Date: 20150720
  Serious: Yes (Hospitalization)
  Sender: FDA-Public Use
  Company Number: CL-009507513-1404CHL007349

PATIENT
  Age: 48 Year
  Sex: Female

DRUGS (11)
  1. REBETOL [Suspect]
     Active Substance: RIBAVIRIN
     Indication: HEPATITIS C
     Dosage: UNK, QD
     Route: 048
     Dates: start: 20140314, end: 2014
  2. VICTRELIS [Suspect]
     Active Substance: BOCEPREVIR
     Indication: HEPATITIS C
     Dosage: DAILY (TOTAL DAILY DOSE: 2400MG)
     Route: 048
     Dates: start: 20140407
  3. CITALOPRAM [Concomitant]
     Active Substance: CITALOPRAM HYDROBROMIDE
     Indication: INSOMNIA
     Dosage: UNK
     Route: 048
     Dates: end: 2014
  4. REBETOL [Suspect]
     Active Substance: RIBAVIRIN
     Dosage: TWO PILLS IN THE MORNING AND TWO PILLS IN EVENING (800MG TOTAL DAILY DOSE)
     Route: 048
     Dates: start: 20140714, end: 20141215
  5. REBETOL [Suspect]
     Active Substance: RIBAVIRIN
     Dosage: 2 TABLETS IN THE MORNING AND ONE TABLET IN THE EVENING (600MG DAILY DOSE)
     Route: 048
     Dates: start: 2014, end: 201407
  6. REBETOL [Suspect]
     Active Substance: RIBAVIRIN
     Dosage: DAILY (TOTAL DAILY DOSE: 1000MG)
     Route: 048
     Dates: start: 20141215
  7. LOPID [Concomitant]
     Active Substance: GEMFIBROZIL
     Indication: BLOOD TRIGLYCERIDES ABNORMAL
     Dosage: 1 TABLET AT NIGHT
     Route: 048
     Dates: start: 201407
  8. PEGINTRON [Suspect]
     Active Substance: PEGINTERFERON ALFA-2B
     Indication: HEPATITIS C
     Dosage: PREFILLED PEN; (REDIPEN); MONTHLY
     Route: 058
     Dates: start: 20140314, end: 201404
  9. PEGINTRON [Suspect]
     Active Substance: PEGINTERFERON ALFA-2B
     Dosage: PREFILLED PEN;(REDIPEN); MONTHLY
     Route: 058
     Dates: start: 20140502
  10. HIPOGLUCIN [Concomitant]
     Indication: GLUCOSE TOLERANCE IMPAIRED
     Dosage: 750 MG DAILY
     Route: 048
  11. EUTIROX [Concomitant]
     Active Substance: LEVOTHYROXINE SODIUM
     Indication: HYPOTHYROIDISM
     Dosage: 50 MICROGRAM DAILY
     Route: 048

REACTIONS (91)
  - Bloody discharge [Unknown]
  - General physical health deterioration [Unknown]
  - Mood altered [Recovering/Resolving]
  - Gingival bleeding [Unknown]
  - Dry skin [Not Recovered/Not Resolved]
  - Asthenia [Unknown]
  - Influenza like illness [Unknown]
  - Nocturia [Unknown]
  - Chills [Unknown]
  - Dysgeusia [Unknown]
  - Oropharyngeal pain [Unknown]
  - Influenza [Unknown]
  - Productive cough [Recovered/Resolved]
  - Dysphonia [Recovering/Resolving]
  - Application site erythema [Recovered/Resolved]
  - Somnolence [Unknown]
  - Abdominal discomfort [Unknown]
  - Dizziness [Unknown]
  - Arthralgia [Unknown]
  - Alopecia [Not Recovered/Not Resolved]
  - Anaemia [Unknown]
  - Diarrhoea [Recovered/Resolved]
  - Diarrhoea [Recovered/Resolved]
  - Neck pain [Recovering/Resolving]
  - Blood triglycerides increased [Not Recovered/Not Resolved]
  - Platelet count decreased [Not Recovered/Not Resolved]
  - Vertigo [Not Recovered/Not Resolved]
  - Mucosal dryness [Not Recovered/Not Resolved]
  - Insomnia [Unknown]
  - Pain in extremity [Unknown]
  - Neutropenia [Not Recovered/Not Resolved]
  - Diarrhoea [Not Recovered/Not Resolved]
  - Pyrexia [Recovered/Resolved]
  - Feeling abnormal [Unknown]
  - Gastrooesophageal reflux disease [Unknown]
  - Influenza like illness [Recovered/Resolved]
  - Headache [Recovered/Resolved]
  - Anaemia [Unknown]
  - Nausea [Unknown]
  - Erythema [Not Recovered/Not Resolved]
  - Weight increased [Recovered/Resolved]
  - Blood cholesterol increased [Not Recovered/Not Resolved]
  - Dermatitis allergic [Not Recovered/Not Resolved]
  - Nasal congestion [Unknown]
  - Abdominal distension [Unknown]
  - Confusional state [Unknown]
  - Disturbance in attention [Unknown]
  - Abdominal pain [Unknown]
  - Thrombocytopenia [Unknown]
  - Anxiety [Recovered/Resolved]
  - Nausea [Recovering/Resolving]
  - Fatigue [Not Recovered/Not Resolved]
  - Limb discomfort [Not Recovered/Not Resolved]
  - Vomiting [Unknown]
  - Dry mouth [Not Recovered/Not Resolved]
  - Sleep disorder [Recovered/Resolved]
  - Pigmentation disorder [Unknown]
  - Tonsillar inflammation [Unknown]
  - Blood triglycerides increased [Not Recovered/Not Resolved]
  - Leukopenia [Unknown]
  - Weight decreased [Not Recovered/Not Resolved]
  - Vomiting [Recovered/Resolved]
  - Cough [Not Recovered/Not Resolved]
  - Myalgia [Unknown]
  - Vasodilatation [Recovering/Resolving]
  - Weight increased [Not Recovered/Not Resolved]
  - Hypersensitivity [Unknown]
  - Adverse event [Unknown]
  - Nausea [Not Recovered/Not Resolved]
  - Dry throat [Not Recovered/Not Resolved]
  - Mucosal discolouration [Unknown]
  - Skin irritation [Unknown]
  - Application site pruritus [Not Recovered/Not Resolved]
  - Pruritus [Unknown]
  - Pruritus [Unknown]
  - Dry mouth [Recovered/Resolved]
  - Eating disorder [Unknown]
  - Pain in extremity [Not Recovered/Not Resolved]
  - Peripheral swelling [Not Recovered/Not Resolved]
  - Anaemia [Not Recovered/Not Resolved]
  - Infection [Unknown]
  - Blood pressure decreased [Recovered/Resolved]
  - Ageusia [Unknown]
  - Memory impairment [Unknown]
  - Abdominal pain upper [Unknown]
  - Insomnia [Unknown]
  - Fatigue [Unknown]
  - Decreased appetite [Not Recovered/Not Resolved]
  - Anxiety [Unknown]
  - Varicose vein [Not Recovered/Not Resolved]
  - Pruritus [Unknown]

NARRATIVE: CASE EVENT DATE: 2014
